FAERS Safety Report 24419892 (Version 2)
Quarter: 2024Q4

REPORT INFORMATION
  Report Type: Report from Study
  Country: US (occurrence: US)
  Receive Date: 20241010
  Receipt Date: 20241018
  Transmission Date: 20250114
  Serious: No
  Sender: ROCHE
  Company Number: US-ROCHE-3510332

PATIENT
  Age: 38 Year
  Sex: Female

DRUGS (3)
  1. CATHFLO ACTIVASE [Suspect]
     Active Substance: ALTEPLASE
     Indication: Essential hypertension
     Route: 065
     Dates: start: 20240111
  2. CATHFLO ACTIVASE [Suspect]
     Active Substance: ALTEPLASE
     Route: 065
     Dates: start: 20240112
  3. PULMOZYME [Suspect]
     Active Substance: DORNASE ALFA
     Indication: Essential hypertension
     Dosage: 2.5 MG/ 30 UNITS
     Route: 065

REACTIONS (3)
  - Off label use [Unknown]
  - Off label use [Unknown]
  - No adverse event [Unknown]
